FAERS Safety Report 8984424 (Version 2)
Quarter: 2013Q2

REPORT INFORMATION
  Report Type: Spontaneous
  Country: US (occurrence: None)
  Receive Date: 20120508
  Receipt Date: 20120709
  Transmission Date: 20140414
  Serious: No
  Sender: FDA-Public Use
  Company Number: 2011HGS-003031

PATIENT
  Age: 44 Year
  Sex: Female
  Weight: 96.62 kg

DRUGS (9)
  1. BENLYSTA [Suspect]
     Indication: SYSTEMIC LUPUS ERYTHEMATOSUS
     Dosage: 1 IN 28 D
     Route: 041
     Dates: start: 20111212
  2. CELLCEPT (MYCOPHENOLATE MOFETIL) [Concomitant]
  3. NEXIUM (ESOMEPRAZOLE MAGNESIUM) [Concomitant]
  4. ISOSORBIDE [Concomitant]
  5. DILTIAZEM [Concomitant]
  6. PLAVIX (CLOPIDOGREL BISULFATE) [Concomitant]
  7. COUMADIN (WARFARIN SODIUM) [Concomitant]
  8. ASPIRIN (ACETYLSALICYLIC ACID) [Concomitant]
  9. METOPROLOL [Concomitant]

REACTIONS (1)
  - Chest discomfort [None]
